FAERS Safety Report 7508691-3 (Version None)
Quarter: 2011Q2

REPORT INFORMATION
  Report Type: 
  Country: None (occurrence: None)
  Receive Date: 20110527
  Receipt Date: 20100719
  Transmission Date: 20111010
  Serious: No
  Sender: FDA-Public Use
  Company Number: A0871170A

PATIENT
  Age: 61 Year
  Sex: Female

DRUGS (6)
  1. SEREVENT [Concomitant]
     Route: 055
     Dates: start: 20100101
  2. OMEPRAZOLE [Concomitant]
  3. ALLEGRA [Concomitant]
  4. LORATADINE [Concomitant]
  5. VENTOLIN [Suspect]
     Dosage: 2PUFF AS REQUIRED
     Route: 055
  6. QVAR 40 [Concomitant]

REACTIONS (1)
  - HEADACHE [None]
